FAERS Safety Report 4304849-5 (Version None)
Quarter: 2004Q1

REPORT INFORMATION
  Report Type: 
  Country: None (occurrence: None)
  Receive Date: 20040225
  Receipt Date: 20040225
  Transmission Date: 20041129
  Serious: Yes (Other)
  Sender: FDA-Public Use
  Company Number: None

PATIENT
  Age: 74 Year
  Sex: Female
  Weight: 61.2356 kg

DRUGS (2)
  1. VASOTEC [Suspect]
     Indication: HYPERTENSION
     Dosage: 1 PER DAY 5 MG
     Dates: start: 19950101
  2. LOTREL [Suspect]
     Dosage: 1 PER DAY 5/10
     Dates: end: 20030101

REACTIONS (8)
  - DERMATITIS EXFOLIATIVE [None]
  - EAR DISORDER [None]
  - HERPES ZOSTER [None]
  - RASH [None]
  - RHEUMATOID ARTHRITIS [None]
  - SCAB [None]
  - THERMAL BURN [None]
  - URTICARIA [None]
